FAERS Safety Report 21655274 (Version 1)
Quarter: 2022Q4

REPORT INFORMATION
  Report Type: Spontaneous
  Country: CN (occurrence: CN)
  Receive Date: 20221129
  Receipt Date: 20221129
  Transmission Date: 20230113
  Serious: Yes (Other)
  Sender: FDA-Public Use
  Company Number: None

PATIENT
  Age: 47 Year
  Sex: Female
  Weight: 50 kg

DRUGS (4)
  1. CYCLOPHOSPHAMIDE [Suspect]
     Active Substance: CYCLOPHOSPHAMIDE
     Indication: Breast cancer female
     Dosage: 0.9 G, QD, DILUTED WITH 100 ML OF SODIUM CHLORIDE
     Route: 041
     Dates: start: 20220920, end: 20220920
  2. SODIUM CHLORIDE [Suspect]
     Active Substance: SODIUM CHLORIDE
     Indication: Medication dilution
     Dosage: 100 ML, QD, USED TO DILUTE 0.9 G CYCLOPHOSPHAMIDE
     Route: 041
     Dates: start: 20220920, end: 20220920
  3. DEXTROSE MONOHYDRATE [Suspect]
     Active Substance: DEXTROSE MONOHYDRATE
     Indication: Medication dilution
     Dosage: 250 ML, QD, USED TO DILUTE 60 MG DOXORUBICIN LIPOSOME INJECTION
     Route: 041
     Dates: start: 20220920, end: 20220920
  4. DOXORUBICIN HYDROCHLORIDE [Suspect]
     Active Substance: DOXORUBICIN HYDROCHLORIDE
     Indication: Breast cancer female
     Dosage: 60 MG, QD, DILUTED WITH 250 ML OF 5% GLUCOSE
     Route: 041
     Dates: start: 20220920, end: 20220920

REACTIONS (1)
  - White blood cell count decreased [Recovered/Resolved]

NARRATIVE: CASE EVENT DATE: 20221010
